FAERS Safety Report 14473849 (Version 1)
Quarter: 2018Q1

REPORT INFORMATION
  Report Type: Spontaneous
  Country: US (occurrence: US)
  Receive Date: 20180201
  Receipt Date: 20180201
  Transmission Date: 20180509
  Serious: Yes (Other)
  Sender: FDA-Public Use
  Company Number: US-PFIZER INC-2018043181

PATIENT
  Age: 55 Year
  Sex: Female
  Weight: 77.9 kg

DRUGS (1)
  1. IBRANCE [Suspect]
     Active Substance: PALBOCICLIB
     Indication: BREAST CANCER
     Dosage: UNK
     Route: 048

REACTIONS (4)
  - Vomiting [Unknown]
  - Malaise [Unknown]
  - Pneumonia [Unknown]
  - White blood cell count decreased [Unknown]
